FAERS Safety Report 23930074 (Version 1)
Quarter: 2024Q2

REPORT INFORMATION
  Report Type: Report from Study
  Country: IE (occurrence: IE)
  Receive Date: 20240601
  Receipt Date: 20240601
  Transmission Date: 20240716
  Serious: Yes (Hospitalization, Other)
  Sender: FDA-Public Use
  Company Number: IE-AMGEN-IRLSL2023228250

PATIENT
  Age: 72 Year
  Sex: Male

DRUGS (19)
  1. KYPROLIS [Suspect]
     Active Substance: CARFILZOMIB
     Indication: Plasma cell myeloma
     Dosage: 124 MILLIGRAM AS PER PRESCRIPTION
     Route: 042
     Dates: start: 20231024
  2. KYPROLIS [Suspect]
     Active Substance: CARFILZOMIB
     Dosage: 124 MILLIGRAM AS PER PRESCRIPTION
     Route: 042
     Dates: start: 20231212
  3. KYPROLIS [Suspect]
     Active Substance: CARFILZOMIB
     Dosage: 124 MILLIGRAM AS PER PRESCRIPTION
     Route: 042
     Dates: start: 20231219
  4. KYPROLIS [Suspect]
     Active Substance: CARFILZOMIB
     Dosage: 124 MILLIGRAM AS PER PRESCRIPTION
     Route: 042
     Dates: start: 20240109
  5. KYPROLIS [Suspect]
     Active Substance: CARFILZOMIB
     Dosage: 122 MILLIGRAM, AS PER PRESCRIPTION
     Route: 042
     Dates: start: 20240206
  6. KYPROLIS [Suspect]
     Active Substance: CARFILZOMIB
     Dosage: 122 MILLIGRAM, AS PER PRESCRIPTION
     Route: 042
     Dates: start: 202402
  7. KYPROLIS [Suspect]
     Active Substance: CARFILZOMIB
     Dosage: 122 MILLIGRAM, AS PER PRESCRIPTION
     Route: 042
     Dates: start: 202404
  8. KYPROLIS [Suspect]
     Active Substance: CARFILZOMIB
     Dosage: 124 MILLIGRAM AS PER PRESCRIPTION
     Route: 042
     Dates: start: 20240402
  9. KYPROLIS [Suspect]
     Active Substance: CARFILZOMIB
     Dosage: 124 MILLIGRAM 162MLS GLUCOSE 5% GIVEN OVER 30 MINS AS PER PRESCRIPTION
     Route: 042
     Dates: start: 2024
  10. DIAZEPAM\ISOPROPAMIDE IODIDE [Concomitant]
     Active Substance: DIAZEPAM\ISOPROPAMIDE IODIDE
     Dosage: 500 MILLIGRAM, QD
     Route: 050
  11. LANSOPRAZOLE [Concomitant]
     Active Substance: LANSOPRAZOLE
     Dosage: 15 MILLIGRAM, QD
     Route: 050
  12. CYCLIZINE [Concomitant]
     Active Substance: CYCLIZINE
     Dosage: 50 MILLIGRAM, AS NECESSARY (PRN (AS REQUIRED)
     Route: 050
  13. LYRICA [Concomitant]
     Active Substance: PREGABALIN
     Dosage: 125 MILLIGRAM, BID
     Route: 050
  14. ATORVASTATIN [Concomitant]
     Active Substance: ATORVASTATIN
     Dosage: 10 MILLIGRAM, QD
     Route: 050
  15. SILODOSIN [Concomitant]
     Active Substance: SILODOSIN
     Dosage: 8 MILLIGRAM, QD
     Route: 050
  16. ZOLPIDEM TARTRATE [Concomitant]
     Active Substance: ZOLPIDEM TARTRATE
     Dosage: 10 MILLIGRAM, QD
     Route: 050
  17. DEXAMETHASONE [Concomitant]
     Active Substance: DEXAMETHASONE
     Dosage: 40 MILLIGRAM AS PER CHEMO PRESCRIPTION
     Route: 050
  18. LERCANIDIPINE HYDROCHLORIDE [Concomitant]
     Active Substance: LERCANIDIPINE HYDROCHLORIDE
     Dosage: 10 MILLIGRAM, BID
     Route: 050
  19. LOSARTAN [Concomitant]
     Active Substance: LOSARTAN
     Dosage: 50 MILLIGRAM, QD
     Route: 050

REACTIONS (10)
  - Lower respiratory tract infection [Unknown]
  - Neuropathy peripheral [Recovered/Resolved]
  - Malaise [Unknown]
  - Infection [Not Recovered/Not Resolved]
  - Joint swelling [Recovering/Resolving]
  - Areflexia [Not Recovered/Not Resolved]
  - Vascular access complication [Not Recovered/Not Resolved]
  - Fatigue [Not Recovered/Not Resolved]
  - Chest pain [Not Recovered/Not Resolved]
  - Nasopharyngitis [Not Recovered/Not Resolved]

NARRATIVE: CASE EVENT DATE: 20231201
